FAERS Safety Report 14095465 (Version 1)
Quarter: 2017Q4

REPORT INFORMATION
  Report Type: Spontaneous
  Country: ZA (occurrence: ZA)
  Receive Date: 20171016
  Receipt Date: 20171016
  Transmission Date: 20180321
  Serious: Yes (Other)
  Sender: FDA-Public Use
  Company Number: ZA-MYLANLABS-2017M1064104

PATIENT
  Age: 50 Year
  Sex: Female

DRUGS (3)
  1. MYLAN INDAPAMIDE 2.5 MG [Suspect]
     Active Substance: INDAPAMIDE
     Indication: HYPERTENSION
     Dosage: 2.5 MG, QD
  2. MICROCIDAL [Suspect]
     Active Substance: GRISEOFULVIN
     Indication: ANTIFUNGAL PROPHYLAXIS
     Dosage: 500 MG, QD
     Dates: start: 201708
  3. TWYNSTA [Suspect]
     Active Substance: AMLODIPINE BESYLATE\TELMISARTAN
     Indication: HYPERTENSION
     Dosage: 80/10 MG

REACTIONS (2)
  - Pain in extremity [Unknown]
  - Circulatory collapse [Unknown]
